FAERS Safety Report 16684538 (Version 1)
Quarter: 2019Q3

REPORT INFORMATION
  Report Type: Spontaneous
  Country: US (occurrence: US)
  Receive Date: 20190808
  Receipt Date: 20190808
  Transmission Date: 20191004
  Serious: No
  Sender: FDA-Public Use
  Company Number: US-TEVA-2019-US-1087420

PATIENT
  Sex: Female

DRUGS (2)
  1. ESTRADIOL. [Suspect]
     Active Substance: ESTRADIOL
     Indication: HORMONE THERAPY
     Dosage: 4 MILLIGRAM DAILY;
     Route: 065
     Dates: start: 20190630
  2. ESTRADIOL. [Suspect]
     Active Substance: ESTRADIOL
     Dosage: 6 MILLIGRAM DAILY;
     Route: 065
     Dates: start: 20190630

REACTIONS (2)
  - Drug ineffective [Unknown]
  - Product storage error [Unknown]
